FAERS Safety Report 11419356 (Version 1)
Quarter: 2015Q3

REPORT INFORMATION
  Report Type: Spontaneous
  Country: JP (occurrence: JP)
  Receive Date: 20150826
  Receipt Date: 20150826
  Transmission Date: 20151125
  Serious: Yes (Other)
  Sender: FDA-Public Use
  Company Number: JP-VIIV HEALTHCARE LIMITED-JP2014JPN018772

PATIENT
  Age: 66 Year
  Sex: Male

DRUGS (2)
  1. ZEFIX [Suspect]
     Active Substance: LAMIVUDINE
     Indication: CHRONIC HEPATITIS B
     Dosage: UNK
     Route: 048
  2. HEPSERA [Suspect]
     Active Substance: ADEFOVIR DIPIVOXIL
     Indication: CHRONIC HEPATITIS B
     Dosage: UNK
     Route: 048
     Dates: start: 2005

REACTIONS (17)
  - Urine uric acid increased [Unknown]
  - Proteinuria [Unknown]
  - Hypophosphataemia [Unknown]
  - Aminoaciduria [Unknown]
  - Osteomalacia [Unknown]
  - Urine phosphorus increased [Unknown]
  - Hypouricaemia [Unknown]
  - Beta 2 microglobulin urine increased [Unknown]
  - Fanconi syndrome [Unknown]
  - Haematuria [Unknown]
  - Proteinuria [Unknown]
  - Beta-N-acetyl-D-glucosaminidase increased [Unknown]
  - Drug resistance [Unknown]
  - Femoral neck fracture [Unknown]
  - Bone scan abnormal [Unknown]
  - Blood creatinine increased [Unknown]
  - Blood alkaline phosphatase increased [Unknown]

NARRATIVE: CASE EVENT DATE: 2008
